FAERS Safety Report 9791977 (Version 2)
Quarter: 2014Q1

REPORT INFORMATION
  Report Type: Report from Study
  Country: CN (occurrence: CN)
  Receive Date: 20140102
  Receipt Date: 20140128
  Transmission Date: 20141002
  Serious: Yes (Other)
  Sender: FDA-Public Use
  Company Number: CN-ASTELLAS-2013US013494

PATIENT
  Age: 71 Year
  Sex: Female

DRUGS (3)
  1. ERLOTINIB TABLET [Suspect]
     Indication: NON-SMALL CELL LUNG CANCER
     Dosage: 150 MG, UID/QD
     Route: 048
     Dates: start: 20130518
  2. ERLOTINIB TABLET [Suspect]
     Dosage: 150 MG,  ONE IN 2 DAYS
     Route: 065
  3. ERLOTINIB TABLET [Suspect]
     Dosage: 150 MG,  ONE IN 4 DAYS
     Route: 065

REACTIONS (5)
  - Eye oedema [Recovering/Resolving]
  - Metastases to central nervous system [Unknown]
  - Pain of skin [Recovered/Resolved]
  - Skin discolouration [Recovered/Resolved]
  - Vision blurred [Unknown]
